FAERS Safety Report 21780690 (Version 2)
Quarter: 2022Q4

REPORT INFORMATION
  Report Type: Report from Study
  Country: US (occurrence: US)
  Receive Date: 20221227
  Receipt Date: 20221227
  Transmission Date: 20230113
  Serious: No
  Sender: FDA-Public Use
  Company Number: US-ABBVIE-4238806

PATIENT
  Age: 62 Year
  Sex: Female

DRUGS (2)
  1. HUMIRA [Suspect]
     Active Substance: ADALIMUMAB
     Indication: Colitis ulcerative
     Route: 058
  2. HUMIRA [Suspect]
     Active Substance: ADALIMUMAB
     Route: 058
     Dates: start: 20211211

REACTIONS (12)
  - Fatigue [Unknown]
  - Constipation [Unknown]
  - Vein disorder [Unknown]
  - Sensitive skin [Unknown]
  - Nausea [Unknown]
  - Erythema [Unknown]
  - Arthralgia [Unknown]
  - Abdominal pain [Unknown]
  - Proctalgia [Unknown]
  - Insomnia [Unknown]
  - Fatigue [Unknown]
  - Abdominal distension [Unknown]

NARRATIVE: CASE EVENT DATE: 20221201
